FAERS Safety Report 12177980 (Version 1)
Quarter: 2016Q1

REPORT INFORMATION
  Report Type: Spontaneous
  Country: BA (occurrence: BA)
  Receive Date: 20160314
  Receipt Date: 20160314
  Transmission Date: 20160526
  Serious: Yes (Other)
  Sender: FDA-Public Use
  Company Number: BA-JNJFOC-20160310523

PATIENT
  Age: 84 Year
  Sex: Female

DRUGS (6)
  1. XARELTO [Suspect]
     Active Substance: RIVAROXABAN
     Indication: THROMBOSIS PROPHYLAXIS
     Route: 048
     Dates: start: 201602
  2. XARELTO [Suspect]
     Active Substance: RIVAROXABAN
     Indication: HIP ARTHROPLASTY
     Route: 048
     Dates: start: 20160202, end: 201602
  3. XARELTO [Suspect]
     Active Substance: RIVAROXABAN
     Indication: VENOUS THROMBOSIS
     Route: 048
     Dates: start: 20160202, end: 201602
  4. XARELTO [Suspect]
     Active Substance: RIVAROXABAN
     Indication: VENOUS THROMBOSIS
     Route: 048
     Dates: start: 201602
  5. XARELTO [Suspect]
     Active Substance: RIVAROXABAN
     Indication: HIP ARTHROPLASTY
     Route: 048
     Dates: start: 201602
  6. XARELTO [Suspect]
     Active Substance: RIVAROXABAN
     Indication: THROMBOSIS PROPHYLAXIS
     Route: 048
     Dates: start: 20160202, end: 201602

REACTIONS (9)
  - Haematuria [Recovered/Resolved]
  - Poor peripheral circulation [Recovering/Resolving]
  - Haemoglobin abnormal [Recovered/Resolved]
  - Blood lactate dehydrogenase increased [Unknown]
  - Vein collapse [Recovering/Resolving]
  - Red blood cell abnormality [Recovered/Resolved]
  - Deep vein thrombosis [Recovering/Resolving]
  - Red blood cells urine positive [Recovered/Resolved]
  - Bacterial test positive [Recovered/Resolved]

NARRATIVE: CASE EVENT DATE: 201602
